FAERS Safety Report 24830737 (Version 1)
Quarter: 2025Q1

REPORT INFORMATION
  Report Type: Spontaneous
  Country: US (occurrence: US)
  Receive Date: 20250110
  Receipt Date: 20250110
  Transmission Date: 20250409
  Serious: No
  Sender: LANNETT
  Company Number: LANN2400448

PATIENT

DRUGS (1)
  1. URSODIOL [Suspect]
     Active Substance: URSODIOL
     Indication: Product used for unknown indication
     Route: 065

REACTIONS (7)
  - Skin lesion [Unknown]
  - Scratch [Unknown]
  - Skin haemorrhage [Unknown]
  - Pruritus [Unknown]
  - Rash [Unknown]
  - Product use issue [Unknown]
  - Off label use [Unknown]
